FAERS Safety Report 14460398 (Version 3)
Quarter: 2018Q2

REPORT INFORMATION
  Report Type: Report from Study
  Country: US (occurrence: US)
  Receive Date: 20180130
  Receipt Date: 20180507
  Transmission Date: 20180711
  Serious: No
  Sender: FDA-Public Use
  Company Number: PHHY2015US128491

PATIENT
  Sex: Female

DRUGS (1)
  1. PROMACTA [Suspect]
     Active Substance: ELTROMBOPAG OLAMINE
     Indication: PRODUCT USED FOR UNKNOWN INDICATION
     Dosage: ?????
     Route: 065

REACTIONS (4)
  - Incorrect dose administered [Unknown]
  - Ligament sprain [Unknown]
  - Back pain [Unknown]
  - Platelet count decreased [Unknown]
